FAERS Safety Report 4920769-7 (Version None)
Quarter: 2006Q1

REPORT INFORMATION
  Report Type: 
  Country: None (occurrence: None)
  Receive Date: 20060223
  Receipt Date: 20050922
  Transmission Date: 20060701
  Serious: Yes (Hospitalization)
  Sender: FDA-Public Use
  Company Number: IT-ABBOTT-05P-083-0311814-00

PATIENT
  Sex: Female
  Weight: 52 kg

DRUGS (8)
  1. HUMIRA [Suspect]
     Indication: RHEUMATOID ARTHRITIS
     Route: 058
     Dates: start: 20050204, end: 20050706
  2. COMMERCIAL HUMIRA [Concomitant]
     Indication: RHEUMATOID ARTHRITIS
     Route: 058
     Dates: start: 20040804
  3. METHYLPREDNISOLONE 16MG TAB [Concomitant]
     Indication: RHEUMATOID ARTHRITIS
     Dates: start: 20011219
  4. GEZOR [Concomitant]
     Indication: HYPERTENSION
     Dates: start: 20030521
  5. METHOTREXATE [Concomitant]
     Indication: RHEUMATOID ARTHRITIS
     Dates: start: 20051122, end: 20051203
  6. ETIZOLAM [Concomitant]
     Indication: TREMOR
     Dates: start: 20051122
  7. CITICOOS [Concomitant]
     Indication: TREMOR
     Dates: start: 20051122
  8. CITICOOS [Concomitant]
     Indication: CONFUSIONAL STATE

REACTIONS (1)
  - DIABETES MELLITUS INADEQUATE CONTROL [None]
